FAERS Safety Report 5931996-4 (Version None)
Quarter: 2008Q4

REPORT INFORMATION
  Report Type: 
  Country: None (occurrence: None)
  Receive Date: 20081027
  Receipt Date: 20081016
  Transmission Date: 20090506
  Serious: Yes (Other)
  Sender: FDA-Public Use
  Company Number: GB-PFIZER INC-2008088580

PATIENT
  Age: 20 Year
  Sex: Male

DRUGS (5)
  1. SOMATROPIN [Suspect]
     Indication: GROWTH HORMONE DEFICIENCY
     Dates: start: 20070101
  2. DESMOPRESSIN ACETATE [Concomitant]
     Indication: DIABETES INSIPIDUS
     Dosage: TEXT:20 UG
     Route: 045
  3. DESMOPRESSIN ACETATE [Concomitant]
     Dosage: TEXT:200 UG
     Route: 045
  4. HYDROCORTISONE [Concomitant]
     Indication: ADRENAL INSUFFICIENCY
     Dosage: DAILY DOSE:5MG
  5. LEVOTHYROXINE SODIUM [Concomitant]
     Dosage: TEXT:125 UG-FREQ:DAILY

REACTIONS (1)
  - HYPERNATRAEMIA [None]
